FAERS Safety Report 24704495 (Version 1)
Quarter: 2024Q4

REPORT INFORMATION
  Report Type: Spontaneous
  Country: US (occurrence: US)
  Receive Date: 20241206
  Receipt Date: 20241206
  Transmission Date: 20250115
  Serious: No
  Sender: Haleon PLC
  Company Number: US-OO2147O23-NVSC2024US229128

PATIENT
  Age: 50 Year
  Sex: Female

DRUGS (1)
  1. TERBINAFINE [Suspect]
     Active Substance: TERBINAFINE\TERBINAFINE HYDROCHLORIDE
     Indication: Fungal infection
     Dosage: DURATION 42 DAYS
     Route: 065

REACTIONS (1)
  - Drug ineffective [Unknown]
